FAERS Safety Report 8476261-9 (Version None)
Quarter: 2012Q2

REPORT INFORMATION
  Report Type: 
  Country: None (occurrence: None)
  Receive Date: 20120628
  Receipt Date: 20120620
  Transmission Date: 20120825
  Serious: No
  Sender: FDA-Public Use
  Company Number: US-B.I. PHARMACEUTICALS,INC./RIDGEFIELD-2012-BP-14134BP

PATIENT
  Sex: Female
  Weight: 69 kg

DRUGS (3)
  1. COUMADIN [Concomitant]
     Indication: CEREBROVASCULAR ACCIDENT PROPHYLAXIS
     Dosage: 4 MG
     Route: 048
     Dates: start: 20110401
  2. PRADAXA [Suspect]
     Indication: CARDIAC DISORDER
     Dosage: 300 MG
     Route: 048
     Dates: start: 20110201, end: 20110401
  3. TIKOSYN [Concomitant]
     Indication: CARDIAC DISORDER
     Dosage: 1000 MG
     Route: 048
     Dates: start: 20110201

REACTIONS (5)
  - ASTHENIA [None]
  - DIZZINESS [None]
  - TREMOR [None]
  - APHAGIA [None]
  - NAUSEA [None]
